FAERS Safety Report 10546255 (Version 1)
Quarter: 2014Q4

REPORT INFORMATION
  Report Type: Spontaneous
  Country: US (occurrence: US)
  Receive Date: 20141027
  Receipt Date: 20141027
  Transmission Date: 20150529
  Serious: No
  Sender: FDA-Public Use
  Company Number: US-ABBVIE-13P-163-1177296-00

PATIENT
  Sex: Female

DRUGS (3)
  1. LUPRON [Suspect]
     Active Substance: LEUPROLIDE ACETATE
     Dates: start: 20100810, end: 20100810
  2. LUPRON [Suspect]
     Active Substance: LEUPROLIDE ACETATE
     Indication: PRODUCT USED FOR UNKNOWN INDICATION
     Dates: start: 2010, end: 2010
  3. NORETHINDRONE ACETATE. [Concomitant]
     Active Substance: NORETHINDRONE ACETATE
     Indication: HOT FLUSH
     Dates: start: 20100914

REACTIONS (7)
  - Muscle spasms [Recovering/Resolving]
  - Headache [Unknown]
  - Hot flush [Recovering/Resolving]
  - Metrorrhagia [Recovering/Resolving]
  - Hot flush [Unknown]
  - Mood swings [Unknown]
  - Menstrual disorder [Unknown]

NARRATIVE: CASE EVENT DATE: 2010
